FAERS Safety Report 16592748 (Version 3)
Quarter: 2019Q4

REPORT INFORMATION
  Report Type: Spontaneous
  Country: JP (occurrence: JP)
  Receive Date: 20190718
  Receipt Date: 20191114
  Transmission Date: 20200122
  Serious: Yes (Hospitalization)
  Sender: FDA-Public Use
  Company Number: JP-EISAI MEDICAL RESEARCH-EC-2019-059252

PATIENT
  Sex: Male
  Weight: 68 kg

DRUGS (20)
  1. GLICLAZIDE [Concomitant]
     Active Substance: GLICLAZIDE
     Indication: PRODUCT USED FOR UNKNOWN INDICATION
     Dosage: DOSE AND FREQUENCY UNKNOWN
     Route: 065
  2. TRIAZOLAM. [Concomitant]
     Active Substance: TRIAZOLAM
     Indication: PRODUCT USED FOR UNKNOWN INDICATION
     Dosage: DOSE AND FREQUENCY UNKNOWN
     Route: 065
  3. ZINC. [Concomitant]
     Active Substance: ZINC
     Indication: PRODUCT USED FOR UNKNOWN INDICATION
     Dosage: DOSE AND FREQUENCY UNKNOWN
     Route: 065
  4. LOPERAMIDE [Concomitant]
     Active Substance: LOPERAMIDE
     Indication: PRODUCT USED FOR UNKNOWN INDICATION
     Dosage: DOSE AND FREQUENCY UNKNOWN
     Route: 065
  5. NESINA [Concomitant]
     Active Substance: ALOGLIPTIN BENZOATE
     Indication: PRODUCT USED FOR UNKNOWN INDICATION
     Dosage: DOSE AND FREQUENCY UNKNOWN
     Route: 065
  6. LUNESTA [Concomitant]
     Active Substance: ESZOPICLONE
     Indication: INSOMNIA
     Dosage: DOSE AND FREQUENCY UNKNOWN
     Route: 048
  7. FEXOFENADINE HYDROCHLORIDE. [Concomitant]
     Active Substance: FEXOFENADINE HYDROCHLORIDE
     Indication: PRODUCT USED FOR UNKNOWN INDICATION
     Dosage: DOSE AND FREQUENCY UNKNOWN
     Route: 065
  8. LIVACT [Concomitant]
     Active Substance: AMINO ACIDS, SOURCE UNSPECIFIED
     Indication: PRODUCT USED FOR UNKNOWN INDICATION
     Dosage: DOSE AND FREQUENCY UNKNOWN
     Route: 065
  9. ENSURE [Concomitant]
     Active Substance: AMINO ACIDS\DEXTROSE\ELECTROLYTES NOS\SOYBEAN OIL\VITAMINS
     Indication: PRODUCT USED FOR UNKNOWN INDICATION
     Dosage: DOSE AND FREQUENCY UNKNOWN
     Route: 065
  10. MOHRUS [Concomitant]
     Active Substance: KETOPROFEN
     Indication: PRODUCT USED FOR UNKNOWN INDICATION
     Dosage: DOSE AND FREQUENCY UNKNOWN
     Route: 065
  11. PROCTOSEDYL [Concomitant]
     Active Substance: DIBUCAINE HYDROCHLORIDE\HYDROCORTISONE
     Indication: PRODUCT USED FOR UNKNOWN INDICATION
     Dosage: DOSE AND FREQUENCY UNKNOWN
     Route: 048
  12. QUENMET [Concomitant]
     Indication: PRODUCT USED FOR UNKNOWN INDICATION
     Dosage: DOSE AND FREQUENCY UNKNOWN
     Route: 065
  13. NEXIUM [Concomitant]
     Active Substance: ESOMEPRAZOLE MAGNESIUM
     Indication: PRODUCT USED FOR UNKNOWN INDICATION
     Dosage: DOSE AND FREQUENCY UNKNOWN
     Route: 065
  14. NIFEDIPINE. [Concomitant]
     Active Substance: NIFEDIPINE
     Indication: PRODUCT USED FOR UNKNOWN INDICATION
     Dosage: DOSE AND FREQUENCY UNKNOWN
     Route: 065
  15. TSUMURA ANCHUSAN EXTRACT GRANULES FOR ETHICAL USE [Concomitant]
     Indication: PRODUCT USED FOR UNKNOWN INDICATION
     Dosage: DOSE AND FREQUENCY UNKNOWN
     Route: 048
  16. COBALUM [Concomitant]
     Indication: PRODUCT USED FOR UNKNOWN INDICATION
     Dosage: DOSE AND FREQUENCY UNKNOWN
     Route: 065
  17. THYRADIN S [Concomitant]
     Active Substance: LEVOTHYROXINE SODIUM
     Indication: PRODUCT USED FOR UNKNOWN INDICATION
     Dosage: DOSE AND FREQUENCY UNKNOWN
     Route: 065
  18. VEGIN [Concomitant]
     Indication: PRODUCT USED FOR UNKNOWN INDICATION
     Dosage: DOSE AND FREQUENCY UNKNOWN
     Route: 048
  19. LENVIMA [Suspect]
     Active Substance: LENVATINIB
     Indication: HEPATOCELLULAR CARCINOMA
     Route: 048
     Dates: start: 20181115, end: 20190709
  20. BISOPROLOL FUMARATE. [Suspect]
     Active Substance: BISOPROLOL FUMARATE
     Indication: PRODUCT USED FOR UNKNOWN INDICATION
     Dosage: DOSE AND FREQUENCY UNKNOWN
     Route: 065

REACTIONS (2)
  - Blood pressure decreased [Recovered/Resolved]
  - Epistaxis [Recovered/Resolved]

NARRATIVE: CASE EVENT DATE: 20190708
